FAERS Safety Report 11539235 (Version 1)
Quarter: 2015Q3

REPORT INFORMATION
  Report Type: Report from Study
  Country: BR (occurrence: BR)
  Receive Date: 20150923
  Receipt Date: 20150923
  Transmission Date: 20151125
  Serious: Yes (Disabling)
  Sender: FDA-Public Use
  Company Number: BR-ABBVIE-15K-020-1466236-00

PATIENT
  Age: 72 Year
  Sex: Female
  Weight: 92 kg

DRUGS (5)
  1. DEFLAZACORT [Concomitant]
     Active Substance: DEFLAZACORT
     Indication: RHEUMATIC DISORDER
     Route: 048
     Dates: start: 20150903
  2. HUMIRA [Suspect]
     Active Substance: ADALIMUMAB
     Indication: RHEUMATOID ARTHRITIS
     Route: 058
     Dates: start: 20150908
  3. LEFLUNOMIDE. [Concomitant]
     Active Substance: LEFLUNOMIDE
     Indication: RHEUMATIC DISORDER
     Route: 048
     Dates: start: 20150908
  4. CEPHALEXIN. [Concomitant]
     Active Substance: CEPHALEXIN
     Indication: INFECTED VARICOSE VEIN
     Route: 048
     Dates: start: 20150914
  5. BENZYLPENICILLIN BENZATHINE [Concomitant]
     Indication: INFECTED VARICOSE VEIN
     Route: 030
     Dates: start: 20150914, end: 20150914

REACTIONS (3)
  - Malaise [Recovering/Resolving]
  - Pain [Recovering/Resolving]
  - Paralysis [Recovering/Resolving]

NARRATIVE: CASE EVENT DATE: 20150908
